FAERS Safety Report 7146446-2 (Version None)
Quarter: 2010Q4

REPORT INFORMATION
  Report Type: 
  Country: None (occurrence: None)
  Receive Date: 20101208
  Receipt Date: 20101201
  Transmission Date: 20110411
  Serious: Yes (Other)
  Sender: FDA-Public Use
  Company Number: US-US-EMD SERONO, INC.-7030384

PATIENT
  Sex: Female

DRUGS (1)
  1. REBIF [Suspect]
     Indication: MULTIPLE SCLEROSIS
     Route: 058
     Dates: start: 20080616

REACTIONS (4)
  - CONTRAST MEDIA ALLERGY [None]
  - HYPOTHYROIDISM [None]
  - SPINAL MENINGEAL CYST [None]
  - THYROID CANCER [None]
